FAERS Safety Report 13884827 (Version 1)
Quarter: 2017Q3

REPORT INFORMATION
  Report Type: Spontaneous
  Country: IN (occurrence: IN)
  Receive Date: 20170821
  Receipt Date: 20170821
  Transmission Date: 20171127
  Serious: Yes (Hospitalization, Other)
  Sender: FDA-Public Use
  Company Number: IN-TORRENT-00001304

PATIENT
  Age: 40 Year
  Sex: Female

DRUGS (1)
  1. CARBAMAZEPINE. [Suspect]
     Active Substance: CARBAMAZEPINE

REACTIONS (4)
  - Pancytopenia [Unknown]
  - Subdural haematoma [Recovering/Resolving]
  - Fall [Unknown]
  - Loss of consciousness [Unknown]
